FAERS Safety Report 13244535 (Version 3)
Quarter: 2017Q1

REPORT INFORMATION
  Report Type: Spontaneous
  Country: US (occurrence: US)
  Receive Date: 20170217
  Receipt Date: 20170323
  Transmission Date: 20170428
  Serious: Yes (Hospitalization)
  Sender: FDA-Public Use
  Company Number: US-UNITED THERAPEUTICS-UNT-2017-001924

PATIENT
  Age: 62 Year
  Sex: Female
  Weight: 79.37 kg

DRUGS (5)
  1. TYVASO [Suspect]
     Active Substance: TREPROSTINIL
     Dosage: UNK
  2. LETAIRIS [Concomitant]
     Active Substance: AMBRISENTAN
     Indication: PRODUCT USED FOR UNKNOWN INDICATION
  3. UPTRAVI [Concomitant]
     Active Substance: SELEXIPAG
     Indication: PRODUCT USED FOR UNKNOWN INDICATION
  4. REVATIO [Concomitant]
     Active Substance: SILDENAFIL CITRATE
     Indication: PRODUCT USED FOR UNKNOWN INDICATION
  5. TYVASO [Suspect]
     Active Substance: TREPROSTINIL
     Indication: PULMONARY HYPERTENSION
     Dosage: 18-54 MICROGRAMS, QID
     Dates: start: 20161118

REACTIONS (10)
  - Memory impairment [Unknown]
  - Blood sodium decreased [Unknown]
  - Hepatic steatosis [Unknown]
  - Contusion [Unknown]
  - Balance disorder [Unknown]
  - Blood potassium decreased [Unknown]
  - Depressed level of consciousness [Unknown]
  - Laboratory test abnormal [Unknown]
  - Hepatic cirrhosis [Unknown]
  - Liver disorder [Unknown]

NARRATIVE: CASE EVENT DATE: 20170209
